FAERS Safety Report 7643362-4 (Version None)
Quarter: 2011Q3

REPORT INFORMATION
  Report Type: 
  Country: None (occurrence: None)
  Receive Date: 20110729
  Receipt Date: 20110718
  Transmission Date: 20111222
  Serious: No
  Sender: FDA-Public Use
  Company Number: CH-BRISTOL-MYERS SQUIBB COMPANY-15907199

PATIENT

DRUGS (1)
  1. LYSODREN [Suspect]

REACTIONS (1)
  - ADVERSE EVENT [None]
